FAERS Safety Report 8337393 (Version 4)
Quarter: 2013Q3

REPORT INFORMATION
  Report Type: Report from Study
  Country: US (occurrence: US)
  Receive Date: 20120116
  Receipt Date: 20130701
  Transmission Date: 20140515
  Serious: Yes (Hospitalization, Other)
  Sender: FDA-Public Use
  Company Number: US-BRISTOL-MYERS SQUIBB COMPANY-16336901

PATIENT
  Age: 34 Year
  Sex: Female
  Weight: 30.4 kg

DRUGS (4)
  1. CISPLATIN [Suspect]
     Indication: OESOPHAGEAL SQUAMOUS CELL CARCINOMA
     Dosage: LAST DOSE:10JAN2012
     Route: 042
     Dates: start: 20111227
  2. TAXOL [Suspect]
     Indication: OESOPHAGEAL SQUAMOUS CELL CARCINOMA
     Dosage: LAST DOSE:10JAN2012
     Route: 042
     Dates: start: 20111227
  3. DILAUDID [Concomitant]
     Indication: PAIN PROPHYLAXIS
     Dosage: 1 Q2
     Route: 042
  4. FENTANYL [Concomitant]

REACTIONS (10)
  - Superior mesenteric artery syndrome [Recovering/Resolving]
  - Small intestinal obstruction [Recovering/Resolving]
  - Bacteraemia [Recovering/Resolving]
  - Febrile neutropenia [Recovering/Resolving]
  - Abdominal pain [Recovering/Resolving]
  - Stomatitis [Recovering/Resolving]
  - Dehydration [Recovering/Resolving]
  - Weight decreased [Recovering/Resolving]
  - Klebsiella bacteraemia [Unknown]
  - Anaemia [Recovering/Resolving]
